FAERS Safety Report 13584542 (Version 1)
Quarter: 2017Q2

REPORT INFORMATION
  Report Type: Spontaneous
  Country: US (occurrence: US)
  Receive Date: 20170526
  Receipt Date: 20170526
  Transmission Date: 20170830
  Serious: Yes (Other)
  Sender: FDA-Public Use
  Company Number: US-BAYER-2017-096967

PATIENT
  Age: 72 Year
  Sex: Male
  Weight: 71.97 kg

DRUGS (2)
  1. DR. SCHOLLS CLEAR AWAY WART REMOVER [Suspect]
     Active Substance: SALICYLIC ACID
     Indication: THERAPEUTIC SKIN CARE TOPICAL
     Dosage: 1 DF, QOD
     Route: 061
     Dates: start: 201705
  2. ASPIRIN. [Concomitant]
     Active Substance: ASPIRIN
     Indication: ANTICOAGULANT THERAPY
     Dosage: UNK UNK, QD
     Route: 048

REACTIONS (3)
  - Skin necrosis [Unknown]
  - Labelled drug-disease interaction medication error [Unknown]
  - Inappropriate schedule of drug administration [Unknown]
